FAERS Safety Report 7429559-7 (Version None)
Quarter: 2011Q2

REPORT INFORMATION
  Report Type: 
  Country: None (occurrence: None)
  Receive Date: 20110421
  Receipt Date: 20110413
  Transmission Date: 20111010
  Serious: No
  Sender: FDA-Public Use
  Company Number: A0909208A

PATIENT
  Age: 72 Year
  Sex: Female

DRUGS (1)
  1. RYTHMOL [Suspect]
     Dosage: 325MG UNKNOWN
     Route: 048

REACTIONS (1)
  - NO ADVERSE EVENT [None]
